FAERS Safety Report 4960343-X (Version None)
Quarter: 2006Q2

REPORT INFORMATION
  Report Type: 
  Country: None (occurrence: None)
  Receive Date: 20060403
  Receipt Date: 20060324
  Transmission Date: 20061013
  Serious: Yes (Other)
  Sender: FDA-Public Use
  Company Number: PHEH2006US04002

PATIENT
  Age: 67 Year
  Sex: Male
  Weight: 67.573 kg

DRUGS (4)
  1. MIACALCIN [Suspect]
     Indication: OSTEOPOROSIS
     Dosage: 200 IU, QD
     Dates: start: 20040101
  2. PIOGLITAZONE HCL [Suspect]
     Indication: DIABETES MELLITUS
     Dosage: 30 MG, QD
     Dates: start: 20010101, end: 20060301
  3. AMARYL [Concomitant]
     Indication: DIABETES MELLITUS
     Dosage: 4 MG, QD
     Dates: start: 19960101
  4. ALTACE [Concomitant]
     Indication: HYPERTENSION
     Dosage: 2.5 MG, BID
     Dates: start: 19960101

REACTIONS (2)
  - LIVER FUNCTION TEST ABNORMAL [None]
  - RENAL FAILURE CHRONIC [None]
